FAERS Safety Report 5147868-1 (Version None)
Quarter: 2006Q4

REPORT INFORMATION
  Report Type: 
  Country: None (occurrence: None)
  Receive Date: 20061110
  Receipt Date: 20061027
  Transmission Date: 20070319
  Serious: Yes (Hospitalization)
  Sender: FDA-Public Use
  Company Number: PHEH2006US13456

PATIENT
  Age: 50 Year
  Sex: Female
  Weight: 81.632 kg

DRUGS (9)
  1. DIOVAN [Suspect]
     Indication: HYPERTENSION
     Dosage: 160 MG, QD
     Dates: start: 20040101, end: 20040101
  2. DIOVAN [Suspect]
     Dosage: 160 MG, QD
     Dates: start: 20060101, end: 20060101
  3. NPH INSULIN [Concomitant]
     Indication: DIABETES MELLITUS
  4. HUMALOG [Concomitant]
     Indication: DIABETES MELLITUS
  5. METOPROLOL TARTRATE [Concomitant]
     Indication: HYPERTENSION
     Dosage: 200MG, UNK
  6. HYDROCHLOROTHIAZIDE [Concomitant]
     Dosage: 25MG, UNK
  7. SODIUM BICARBONATE [Concomitant]
     Dosage: 650MG, UNK
  8. OXYCODONE HCL [Concomitant]
     Indication: MUSCULOSKELETAL PAIN
     Dosage: 200 MG, QHS
  9. HYDROCODONE [Concomitant]
     Indication: MUSCULOSKELETAL PAIN
     Dosage: 10/325MG, UNK

REACTIONS (4)
  - DEHYDRATION [None]
  - DIARRHOEA [None]
  - HYPERKALAEMIA [None]
  - STOMACH DISCOMFORT [None]
